FAERS Safety Report 15768390 (Version 1)
Quarter: 2018Q4

REPORT INFORMATION
  Report Type: Spontaneous
  Country: US (occurrence: US)
  Receive Date: 20181227
  Receipt Date: 20181227
  Transmission Date: 20190205
  Serious: Yes (Other)
  Sender: FDA-Public Use
  Company Number: PHEH2018US054387

PATIENT
  Sex: Female

DRUGS (1)
  1. LAPATINIB [Suspect]
     Active Substance: LAPATINIB
     Indication: ADENOCARCINOMA OF COLON
     Dosage: 1000 MG, QD
     Route: 065

REACTIONS (2)
  - Product use in unapproved indication [Unknown]
  - Metastases to central nervous system [Unknown]
